FAERS Safety Report 10191496 (Version 1)
Quarter: 2014Q2

REPORT INFORMATION
  Report Type: Spontaneous
  Country: US (occurrence: None)
  Receive Date: 20140522
  Receipt Date: 20140522
  Transmission Date: 20141212
  Serious: Yes (Hospitalization)
  Sender: FDA-Public Use
  Company Number: None

PATIENT
  Age: 62 Year
  Sex: Male
  Weight: 120.2 kg

DRUGS (8)
  1. DEPO-TESTOSTERONE [Suspect]
     Indication: BLOOD TESTOSTERONE DECREASED
     Route: 030
     Dates: start: 20120904, end: 20131231
  2. DEPO-TESTOSTERONE [Suspect]
     Indication: AFFECTIVE DISORDER
     Route: 030
     Dates: start: 20120904, end: 20131231
  3. DEPO-TESTOSTERONE [Suspect]
     Indication: ANGER
     Route: 030
     Dates: start: 20120904, end: 20131231
  4. HYDROCHLOROTHIAZIDE [Concomitant]
  5. MELOXICAM [Concomitant]
  6. VOLTAREN [Concomitant]
  7. RANITIDIN HCL [Concomitant]
  8. ALBUTEROL SULFATE [Concomitant]

REACTIONS (1)
  - Acute myocardial infarction [None]
